FAERS Safety Report 8409755 (Version 5)
Quarter: 2015Q2

REPORT INFORMATION
  Report Type: Report from Study
  Country: IL (occurrence: IL)
  Receive Date: 20120216
  Receipt Date: 20150522
  Transmission Date: 20150821
  Serious: Yes (Hospitalization)
  Sender: FDA-Public Use
  Company Number: IL-ROCHE-1027396

PATIENT
  Age: 60 Year
  Sex: Male

DRUGS (8)
  1. OMEPRADEX [Concomitant]
     Active Substance: OMEPRAZOLE
     Route: 065
  2. RIZATRIPTAN [Concomitant]
     Active Substance: RIZATRIPTAN
     Route: 065
     Dates: start: 1992
  3. VEMURAFENIB [Suspect]
     Active Substance: VEMURAFENIB
     Dosage: PILL  ; DATE OF LAST DOSE PRIOR TO SAE : 29/DEC/2011
     Route: 048
     Dates: start: 20111005, end: 20111229
  4. VEMURAFENIB [Suspect]
     Active Substance: VEMURAFENIB
     Indication: METASTATIC MALIGNANT MELANOMA
     Route: 048
     Dates: start: 20110825
  5. VEMURAFENIB [Suspect]
     Active Substance: VEMURAFENIB
     Route: 048
     Dates: start: 20110918
  6. VEMURAFENIB [Suspect]
     Active Substance: VEMURAFENIB
     Route: 048
     Dates: start: 20120104
  7. SIMVACOR [Concomitant]
     Active Substance: SIMVASTATIN
  8. BEZAFIBRATE [Concomitant]
     Active Substance: BEZAFIBRATE

REACTIONS (1)
  - Pericarditis [Recovered/Resolved]

NARRATIVE: CASE EVENT DATE: 20111231
